FAERS Safety Report 10221923 (Version 1)
Quarter: 2014Q2

REPORT INFORMATION
  Report Type: Spontaneous
  Country: US (occurrence: None)
  Receive Date: 20140605
  Receipt Date: 20140605
  Transmission Date: 20141212
  Serious: No
  Sender: FDA-Public Use
  Company Number: None

PATIENT
  Age: 79 Year
  Sex: Male
  Weight: 73.52 kg

DRUGS (2)
  1. CARBOPLATIN [Suspect]
     Dates: end: 20130826
  2. PACLITAXEL (TAXOL) [Suspect]
     Dates: end: 20130826

REACTIONS (2)
  - Toxicity to various agents [None]
  - Neutrophil count abnormal [None]
